FAERS Safety Report 25658011 (Version 1)
Quarter: 2025Q3

REPORT INFORMATION
  Report Type: Spontaneous
  Country: BR (occurrence: BR)
  Receive Date: 20250808
  Receipt Date: 20250808
  Transmission Date: 20251021
  Serious: Yes (Hospitalization)
  Sender: CHEPLAPHARM
  Company Number: BR-ROCHE-2190384

PATIENT
  Age: 59 Year
  Sex: Female
  Weight: 46 kg

DRUGS (7)
  1. CAPECITABINE [Suspect]
     Active Substance: CAPECITABINE
     Indication: Triple negative breast cancer
     Route: 048
  2. ATEZOLIZUMAB [Suspect]
     Active Substance: ATEZOLIZUMAB
     Indication: Triple negative breast cancer
     Dosage: - ON 14/SEP/2018, SHE STARTED THERAPY WITH INTRAVENOUS BLINDED ATEZOLIZUMAB INFUSION ONCE PER 3 W...
     Route: 042
     Dates: start: 20180914
  3. ALPRAZOLAM [Concomitant]
     Active Substance: ALPRAZOLAM
     Dates: start: 201709
  4. TRAZODONE HYDROCHLORIDE [Concomitant]
     Active Substance: TRAZODONE HYDROCHLORIDE
     Dates: start: 201709
  5. DESVENLAFAXINE [Concomitant]
     Active Substance: DESVENLAFAXINE
     Dates: start: 201708
  6. FENOTEROL [Concomitant]
     Active Substance: FENOTEROL
     Dates: start: 20180823, end: 20180923
  7. CODEINE [Concomitant]
     Active Substance: CODEINE
     Dates: start: 20180814

REACTIONS (1)
  - Pneumonitis [Not Recovered/Not Resolved]

NARRATIVE: CASE EVENT DATE: 20180914
